FAERS Safety Report 23458694 (Version 4)
Quarter: 2024Q1

REPORT INFORMATION
  Report Type: Spontaneous
  Country: US (occurrence: US)
  Receive Date: 20240130
  Receipt Date: 20240325
  Transmission Date: 20240410
  Serious: Yes (Disabling, Other)
  Sender: FDA-Public Use
  Company Number: US-GSKCCFUS-Case-01916107_AE-106718

PATIENT

DRUGS (2)
  1. NUCALA [Suspect]
     Active Substance: MEPOLIZUMAB
     Indication: Asthma
     Dosage: 100 MG
     Dates: start: 202401
  2. NUCALA [Suspect]
     Active Substance: MEPOLIZUMAB
     Indication: Product used for unknown indication
     Dosage: UNK

REACTIONS (7)
  - Disability [Unknown]
  - Surgery [Unknown]
  - Headache [Recovered/Resolved]
  - Respiration abnormal [Unknown]
  - Stress [Unknown]
  - Product storage error [Unknown]
  - Drug ineffective [Unknown]
